FAERS Safety Report 10733604 (Version 1)
Quarter: 2015Q1

REPORT INFORMATION
  Report Type: Spontaneous
  Country: AE (occurrence: AE)
  Receive Date: 20150123
  Receipt Date: 20150123
  Transmission Date: 20150721
  Serious: Yes (Other)
  Sender: FDA-Public Use
  Company Number: AE-GLAXOSMITHKLINE-AE2015GSK004916

PATIENT
  Age: 25 Year
  Sex: Female

DRUGS (1)
  1. ZINNAT [Suspect]
     Active Substance: CEFUROXIME AXETIL
     Indication: SUICIDE ATTEMPT
     Dosage: 5000 MG, 1D
     Route: 048
     Dates: start: 20150115, end: 20150115

REACTIONS (1)
  - Suicide attempt [Unknown]

NARRATIVE: CASE EVENT DATE: 20150115
